FAERS Safety Report 9272499 (Version 1)
Quarter: 2013Q2

REPORT INFORMATION
  Report Type: Spontaneous
  Country: US (occurrence: US)
  Receive Date: 20130506
  Receipt Date: 20130506
  Transmission Date: 20140414
  Serious: No
  Sender: FDA-Public Use
  Company Number: US-ASTRAZENECA-2012SE80298

PATIENT
  Age: 68 Year
  Sex: Male

DRUGS (2)
  1. PRILOSEC OTC [Suspect]
     Indication: BARRETT^S OESOPHAGUS
     Dosage: DAILY
     Route: 048
     Dates: start: 2007
  2. DIAZEPAM [Suspect]
     Route: 048

REACTIONS (10)
  - Labelled drug-drug interaction medication error [Unknown]
  - Nervousness [Unknown]
  - Muscle tightness [Unknown]
  - Tremor [Unknown]
  - Asthenia [Unknown]
  - Dyspepsia [None]
  - Incorrect drug administration duration [Unknown]
  - Off label use [Unknown]
  - Drug ineffective [Unknown]
  - Drug dose omission [None]
